FAERS Safety Report 16423886 (Version 1)
Quarter: 2019Q2

REPORT INFORMATION
  Report Type: Spontaneous
  Country: US (occurrence: US)
  Receive Date: 20190613
  Receipt Date: 20190613
  Transmission Date: 20190711
  Serious: No
  Sender: FDA-Public Use
  Company Number: US-SCIEGEN PHARMACEUTICALS INC-2019SCISPO00196

PATIENT

DRUGS (2)
  1. PRAMIPEXOLE DIHYDROCHLORIDE TABLETS [Suspect]
     Active Substance: PRAMIPEXOLE DIHYDROCHLORIDE
  2. LORAZEPAM. [Concomitant]
     Active Substance: LORAZEPAM

REACTIONS (8)
  - Condition aggravated [Recovered/Resolved]
  - Extra dose administered [Unknown]
  - Product substitution issue [Unknown]
  - Dizziness [Recovered/Resolved]
  - Nausea [Recovered/Resolved]
  - Headache [Recovered/Resolved]
  - Product prescribing issue [Unknown]
  - Drug ineffective [Recovered/Resolved]
